FAERS Safety Report 15066840 (Version 1)
Quarter: 2018Q2

REPORT INFORMATION
  Report Type: Report from Study
  Country: US (occurrence: US)
  Receive Date: 20180626
  Receipt Date: 20180626
  Transmission Date: 20180711
  Serious: Yes (Hospitalization, Other)
  Sender: FDA-Public Use
  Company Number: US-AMGEN-USASL2018084646

PATIENT
  Age: 56 Year
  Sex: Female

DRUGS (1)
  1. ENBREL [Suspect]
     Active Substance: ETANERCEPT
     Indication: PSORIATIC ARTHROPATHY
     Dosage: 50 MG, QWK
     Route: 065

REACTIONS (6)
  - Cardiac disorder [Unknown]
  - Asthenia [Unknown]
  - Pancreatic mass [Unknown]
  - Chronic obstructive pulmonary disease [Unknown]
  - Blood glucose fluctuation [Unknown]
  - Vomiting [Unknown]

NARRATIVE: CASE EVENT DATE: 20180620
